FAERS Safety Report 7670170-0 (Version None)
Quarter: 2011Q3

REPORT INFORMATION
  Report Type: 
  Country: None (occurrence: None)
  Receive Date: 20110808
  Receipt Date: 20110728
  Transmission Date: 20111222
  Serious: Yes (Other)
  Sender: FDA-Public Use
  Company Number: US-ASTRAZENECA-2010SE40429

PATIENT
  Sex: Male

DRUGS (2)
  1. NEXIUM [Suspect]
     Route: 048
  2. SEROQUEL [Suspect]
     Route: 048

REACTIONS (8)
  - CEREBROVASCULAR ACCIDENT [None]
  - RENAL CANCER [None]
  - NEOPLASM MALIGNANT [None]
  - TRANSIENT ISCHAEMIC ATTACK [None]
  - CARDIAC NEOPLASM MALIGNANT [None]
  - BRAIN NEOPLASM MALIGNANT [None]
  - LUNG NEOPLASM MALIGNANT [None]
  - LIP AND/OR ORAL CAVITY CANCER [None]
